FAERS Safety Report 9085687 (Version 1)
Quarter: 2013Q1

REPORT INFORMATION
  Report Type: Report from Study
  Country: US (occurrence: US)
  Receive Date: 20130130
  Receipt Date: 20130130
  Transmission Date: 20140127
  Serious: No
  Sender: FDA-Public Use
  Company Number: US-ABBOTT-12P-163-0988479-00

PATIENT
  Age: 48 Year
  Sex: Female
  Weight: 77.18 kg

DRUGS (4)
  1. HUMIRA [Suspect]
     Indication: RHEUMATOID ARTHRITIS
     Route: 058
     Dates: start: 20120906
  2. PREDNISONE (NON-ABBOTT) [Concomitant]
     Indication: RHEUMATOID ARTHRITIS
     Route: 058
     Dates: start: 201209
  3. METHOTREXATE (NON-ABBOTT) [Concomitant]
     Indication: RHEUMATOID ARTHRITIS
     Dosage: 8 TABLETS
     Route: 048
  4. HYDROXYCHLOROQUINE (NON-ABBOTT) [Concomitant]
     Indication: RHEUMATOID ARTHRITIS

REACTIONS (4)
  - Throat irritation [Recovered/Resolved]
  - Throat irritation [Recovered/Resolved]
  - Dyspnoea [Recovered/Resolved]
  - Chest discomfort [Recovered/Resolved]
